FAERS Safety Report 13845852 (Version 1)
Quarter: 2017Q3

REPORT INFORMATION
  Report Type: Spontaneous
  Country: US (occurrence: US)
  Receive Date: 20170808
  Receipt Date: 20170808
  Transmission Date: 20171127
  Serious: No
  Sender: FDA-Public Use
  Company Number: US-ROCHE-724939

PATIENT
  Age: 83 Year
  Sex: Female
  Weight: 56.2 kg

DRUGS (8)
  1. PLAVIX [Concomitant]
     Active Substance: CLOPIDOGREL BISULFATE
     Route: 065
  2. IBUPROFEN. [Suspect]
     Active Substance: IBUPROFEN
     Indication: MUSCULOSKELETAL PAIN
     Route: 065
  3. LOVASTATIN. [Concomitant]
     Active Substance: LOVASTATIN
     Route: 065
  4. METOPROLOL. [Concomitant]
     Active Substance: METOPROLOL
     Route: 065
  5. BONIVA [Suspect]
     Active Substance: IBANDRONATE SODIUM
     Indication: PRODUCT USED FOR UNKNOWN INDICATION
     Route: 048
  6. DIOVAN [Concomitant]
     Active Substance: VALSARTAN
     Route: 065
  7. CALCIUM [Concomitant]
     Active Substance: CALCIUM
     Route: 065
  8. ASPIRIN. [Concomitant]
     Active Substance: ASPIRIN
     Dosage: DAILY
     Route: 065

REACTIONS (4)
  - Hypoaesthesia [Unknown]
  - Musculoskeletal pain [Not Recovered/Not Resolved]
  - Abdominal discomfort [Unknown]
  - Diplopia [Unknown]

NARRATIVE: CASE EVENT DATE: 201007
